FAERS Safety Report 4758876-4 (Version None)
Quarter: 2005Q3

REPORT INFORMATION
  Report Type: 
  Country: None (occurrence: None)
  Receive Date: 20050826
  Receipt Date: 20050817
  Transmission Date: 20060218
  Serious: Yes (Disabling, Other)
  Sender: FDA-Public Use
  Company Number: 2005116758

PATIENT
  Sex: Female
  Weight: 86.1834 kg

DRUGS (6)
  1. LIPITOR [Suspect]
     Indication: BLOOD CHOLESTEROL INCREASED
     Dosage: 40 MG (40 MG, 1 IN 1 D), ORAL
     Route: 048
  2. METFORMIN HCL [Concomitant]
  3. HYDROCHLOROTHIAZIDE [Concomitant]
  4. ACTOS [Concomitant]
  5. AMARYL [Concomitant]
  6. ORTHO-EST [Concomitant]

REACTIONS (6)
  - BACK INJURY [None]
  - BLOOD CHOLESTEROL INCREASED [None]
  - IMPAIRED DRIVING ABILITY [None]
  - JOINT INJURY [None]
  - MOBILITY DECREASED [None]
  - PAIN [None]
